FAERS Safety Report 17212355 (Version 1)
Quarter: 2019Q4

REPORT INFORMATION
  Report Type: Spontaneous
  Country: US (occurrence: US)
  Receive Date: 20191230
  Receipt Date: 20191230
  Transmission Date: 20200122
  Serious: No
  Sender: FDA-Public Use
  Company Number: US-GLAXOSMITHKLINE-US2019234748

PATIENT
  Sex: Female

DRUGS (1)
  1. ABREVA [Suspect]
     Active Substance: DOCOSANOL
     Indication: ORAL HERPES
     Dosage: UNK (APPLYING IT 2 TO 3 TIMES A DAY)
     Route: 065

REACTIONS (3)
  - Inappropriate schedule of product administration [Unknown]
  - Condition aggravated [Unknown]
  - Oral herpes [Unknown]
